FAERS Safety Report 7085672-8 (Version None)
Quarter: 2010Q4

REPORT INFORMATION
  Report Type: 
  Country: None (occurrence: None)
  Receive Date: 20101105
  Receipt Date: 20101028
  Transmission Date: 20110411
  Serious: Yes (Other)
  Sender: FDA-Public Use
  Company Number: JP-PFIZER INC-2010137664

PATIENT
  Age: 91 Year
  Sex: Female

DRUGS (3)
  1. LYRICA [Suspect]
     Dosage: 150 UNK, UNK
     Route: 048
     Dates: start: 20100707, end: 20100721
  2. LYRICA [Suspect]
     Dosage: UNK
     Route: 048
     Dates: start: 20100722, end: 20100804
  3. LYRICA [Suspect]
     Dosage: UNK
     Route: 048
     Dates: start: 20100805, end: 20100818

REACTIONS (3)
  - COGNITIVE DISORDER [None]
  - DEMENTIA [None]
  - MUSCULOSKELETAL STIFFNESS [None]
